FAERS Safety Report 16858109 (Version 1)
Quarter: 2019Q3

REPORT INFORMATION
  Report Type: Spontaneous
  Country: TR (occurrence: TR)
  Receive Date: 20190926
  Receipt Date: 20190926
  Transmission Date: 20191005
  Serious: Yes (Life-Threatening, Hospitalization, Other)
  Sender: FDA-Public Use
  Company Number: TR-UCBSA-2019040146

PATIENT
  Age: 8 Year
  Sex: Female
  Weight: 24 kg

DRUGS (1)
  1. KEPPRA [Suspect]
     Active Substance: LEVETIRACETAM
     Indication: EPILEPSY
     Dosage: TOTAL DAILY DOSE OF 800 MG
     Route: 048
     Dates: start: 2019, end: 2019

REACTIONS (3)
  - Seizure [Unknown]
  - Coagulopathy [Recovering/Resolving]
  - Ear haemorrhage [Unknown]

NARRATIVE: CASE EVENT DATE: 20190910
